FAERS Safety Report 14757430 (Version 1)
Quarter: 2018Q2

REPORT INFORMATION
  Report Type: Spontaneous
  Country: US (occurrence: US)
  Receive Date: 20180409
  Receipt Date: 20180409
  Transmission Date: 20180711
  Serious: No
  Sender: FDA-Public Use
  Company Number: None

PATIENT
  Age: 70 Year
  Sex: Female
  Weight: 50.4 kg

DRUGS (9)
  1. PROLIA [Suspect]
     Active Substance: DENOSUMAB
     Indication: OSTEOPOROSIS
     Dosage: TWICE A YEAR; INJECTION INTO ARM?
     Dates: start: 20160523, end: 20171127
  2. VITAMIN D [Concomitant]
     Active Substance: CHOLECALCIFEROL
  3. CALCIUM [Concomitant]
     Active Substance: CALCIUM
  4. LUTEIN [Concomitant]
     Active Substance: LUTEIN
  5. MAGNESIUM [Concomitant]
     Active Substance: MAGNESIUM
  6. FLAXSEED [Concomitant]
     Active Substance: FLAX SEED
  7. LOTOMAX EYE DROPS [Concomitant]
  8. LOTOMAX EYE OINTMENT [Concomitant]
  9. MULTI-VITAMIN [Concomitant]
     Active Substance: .ALPHA.-TOCOPHEROL ACETATE, DL-\ASCORBIC ACID\CYANOCOBALAMIN\FLUORIDE ION\FOLIC ACID\NIACIN\PYRIDOXINE\RIBOFLAVIN\THIAMINE\VITAMIN A\VITAMIN D

REACTIONS (4)
  - Muscular weakness [None]
  - Arthralgia [None]
  - Myalgia [None]
  - Joint stiffness [None]

NARRATIVE: CASE EVENT DATE: 20180304
